FAERS Safety Report 9201945 (Version 2)
Quarter: 2013Q2

REPORT INFORMATION
  Report Type: Spontaneous
  Country: FR (occurrence: None)
  Receive Date: 20130327
  Receipt Date: 20130415
  Transmission Date: 20140414
  Serious: Yes (Hospitalization)
  Sender: FDA-Public Use
  Company Number: LTI2013A00040

PATIENT
  Age: 52 Year
  Sex: Male

DRUGS (8)
  1. OGAST [Suspect]
     Indication: PRODUCT USED FOR UNKNOWN INDICATION
     Dosage: 15 MG (15 MG, 1 -2)
     Route: 048
     Dates: start: 20121022
  2. DAFALGAN [Suspect]
     Indication: PRODUCT USED FOR UNKNOWN INDICATION
     Route: 048
     Dates: start: 20121022
  3. CLOPIDOGREL [Suspect]
     Indication: PRODUCT USED FOR UNKNOWN INDICATION
     Dosage: 75 MG, 1 IN 1 D
     Route: 048
     Dates: start: 20121022
  4. ATORVASTATIN [Suspect]
     Indication: PRODUCT USED FOR UNKNOWN INDICATION
     Dosage: 40 MG, 1 IN 1 D
     Route: 048
     Dates: start: 20121022
  5. LOVENOX [Suspect]
     Indication: PRODUCT USED FOR UNKNOWN INDICATION
     Dosage: 1 IN 1D
     Route: 058
     Dates: start: 20121022, end: 20121213
  6. NICOPATCH [Suspect]
     Indication: PRODUCT USED FOR UNKNOWN INDICATION
     Dosage: 21 MG, 1 IN 1 D
     Dates: start: 20121022
  7. LYRICA [Suspect]
     Indication: NEURALGIA
     Dosage: 100 MG, 1 IN 1 D
     Route: 048
     Dates: start: 20121117, end: 20121121
  8. PLACEBO (PLACEBO) [Concomitant]

REACTIONS (1)
  - Leukocytoclastic vasculitis [None]
